FAERS Safety Report 15345686 (Version 2)
Quarter: 2018Q3

REPORT INFORMATION
  Report Type: Spontaneous
  Country: US (occurrence: US)
  Receive Date: 20180904
  Receipt Date: 20180911
  Transmission Date: 20181010
  Serious: Yes (Hospitalization)
  Sender: FDA-Public Use
  Company Number: US-ROCHE-2177991

PATIENT
  Age: 29 Year
  Sex: Female
  Weight: 58.11 kg

DRUGS (7)
  1. PROAIR HFA [Concomitant]
     Active Substance: ALBUTEROL SULFATE
  2. SYMBICORT [Concomitant]
     Active Substance: BUDESONIDE\FORMOTEROL FUMARATE DIHYDRATE
  3. FLONASE [Concomitant]
     Active Substance: FLUTICASONE PROPIONATE
  4. XOLAIR [Suspect]
     Active Substance: OMALIZUMAB
     Indication: ASTHMA
     Dosage: SAMPLE
     Route: 058
     Dates: start: 20180820
  5. EPINEPHRINE. [Concomitant]
     Active Substance: EPINEPHRINE
  6. SINGULAIR [Concomitant]
     Active Substance: MONTELUKAST SODIUM
  7. BENADRYL [Concomitant]
     Active Substance: DIPHENHYDRAMINE HYDROCHLORIDE

REACTIONS (1)
  - Anaphylactic reaction [Recovered/Resolved]

NARRATIVE: CASE EVENT DATE: 20180820
